FAERS Safety Report 23494965 (Version 1)
Quarter: 2024Q1

REPORT INFORMATION
  Report Type: Spontaneous
  Country: TR (occurrence: TR)
  Receive Date: 20240207
  Receipt Date: 20240207
  Transmission Date: 20240409
  Serious: Yes (Other)
  Sender: FDA-Public Use
  Company Number: TR-AMGEN-TURSP2024022683

PATIENT
  Age: 50 Year
  Sex: Female

DRUGS (3)
  1. ADALIMUMAB [Suspect]
     Active Substance: ADALIMUMAB\ISOPROPYL ALCOHOL
     Indication: Vogt-Koyanagi-Harada disease
     Dosage: UNK
     Route: 058
  2. ISONIAZID [Concomitant]
     Active Substance: ISONIAZID
     Indication: Mycobacterium tuberculosis complex test positive
     Dosage: 100 MILLIGRAM, QD
     Route: 065
  3. ISONIAZID [Concomitant]
     Active Substance: ISONIAZID
     Indication: Antibiotic prophylaxis

REACTIONS (3)
  - Hepatic function abnormal [Recovered/Resolved]
  - Cataract [Unknown]
  - Off label use [Unknown]
